FAERS Safety Report 8343186-9 (Version None)
Quarter: 2012Q2

REPORT INFORMATION
  Report Type: 
  Country: None (occurrence: None)
  Receive Date: 20120508
  Receipt Date: 20120430
  Transmission Date: 20120825
  Serious: Yes (Hospitalization, Other)
  Sender: FDA-Public Use
  Company Number: US-BAYER-2011-055184

PATIENT
  Age: 41 Year
  Sex: Female
  Weight: 82 kg

DRUGS (12)
  1. DROSPIRENONE AND ETHINYL ESTRADIOL [Suspect]
     Dosage: UNK
     Dates: end: 20110101
  2. FLECAINIDE ACETATE [Concomitant]
     Dosage: UNK
     Dates: start: 20080401
  3. RESTASIS [Concomitant]
     Dosage: UNK
     Dates: start: 20080401
  4. LIDODERM [Concomitant]
     Dosage: UNK
     Dates: start: 20080401
  5. YASMIN [Suspect]
     Dosage: UNK
     Dates: start: 20010101, end: 20110101
  6. LOVENOX [Concomitant]
     Dosage: UNK
     Dates: start: 20000101
  7. EFFEXOR [Concomitant]
     Dosage: UNK
     Dates: start: 20080401
  8. YAZ [Suspect]
     Dosage: UNK
     Dates: end: 20110101
  9. FLEXERIL [Concomitant]
     Dosage: UNK
     Dates: start: 20080401
  10. LEVOXYL [Concomitant]
     Indication: HYPOTHYROIDISM
  11. PREVACID [Concomitant]
  12. CLARINEX [Concomitant]
     Dosage: UNK
     Dates: start: 20080401

REACTIONS (3)
  - GALLBLADDER INJURY [None]
  - CHOLECYSTITIS CHRONIC [None]
  - PAIN [None]
